FAERS Safety Report 4814732-4 (Version None)
Quarter: 2005Q4

REPORT INFORMATION
  Report Type: 
  Country: None (occurrence: None)
  Receive Date: 20051028
  Receipt Date: 20041217
  Transmission Date: 20060501
  Serious: No
  Sender: FDA-Public Use
  Company Number: US-GLAXOSMITHKLINE-A0537763A

PATIENT
  Age: 63 Year
  Sex: Female

DRUGS (8)
  1. ADVAIR DISKUS 100/50 [Suspect]
     Indication: ASTHMA
     Route: 055
  2. CARDIZEM CD [Concomitant]
  3. THEOPHYLLINE [Concomitant]
  4. BUSPAR [Concomitant]
  5. XANAX [Concomitant]
  6. PREDNISONE [Concomitant]
  7. OXYGEN [Concomitant]
  8. IMDUR [Concomitant]

REACTIONS (1)
  - BRONCHITIS [None]
